FAERS Safety Report 4348391-4 (Version None)
Quarter: 2004Q2

REPORT INFORMATION
  Report Type: 
  Country: None (occurrence: None)
  Receive Date: 20040427
  Receipt Date: 20030917
  Transmission Date: 20050107
  Serious: Yes (Death, Hospitalization)
  Sender: FDA-Public Use
  Company Number: US-BRISTOL-MYERS SQUIBB COMPANY-12385662

PATIENT
  Age: 16 Year
  Sex: Female
  Weight: 62 kg

DRUGS (1)
  1. SERZONE [Suspect]
     Indication: DEPRESSION
     Dosage: STARTED 14-MAR-2000 AT A DOSE OF 50MG BID + TITRATED TO 150MG BID-IN AUG-00 DOSE WAS ^400MG^
     Route: 048
     Dates: start: 20000314

REACTIONS (11)
  - ACTIVATED PARTIAL THROMBOPLASTIN TIME PROLONGED [None]
  - BLOOD GLUCOSE DECREASED [None]
  - DEATH [None]
  - HEPATIC FAILURE [None]
  - HEPATITIS [None]
  - HEPATOMEGALY [None]
  - INTERNATIONAL NORMALISED RATIO INCREASED [None]
  - LETHARGY [None]
  - LIVER TENDERNESS [None]
  - LIVER TRANSPLANT [None]
  - PROTHROMBIN TIME PROLONGED [None]
